FAERS Safety Report 10165700 (Version 1)
Quarter: 2014Q2

REPORT INFORMATION
  Report Type: Spontaneous
  Country: US (occurrence: US)
  Receive Date: 20140510
  Receipt Date: 20140510
  Transmission Date: 20141212
  Serious: No
  Sender: FDA-Public Use
  Company Number: US-BRISTOL-MYERS SQUIBB COMPANY-19894948

PATIENT
  Age: 72 Year
  Sex: Male
  Weight: 98.41 kg

DRUGS (1)
  1. BYDUREON [Suspect]
     Indication: TYPE 2 DIABETES MELLITUS
     Route: 058
     Dates: start: 2013

REACTIONS (7)
  - Memory impairment [Unknown]
  - Confusional state [Unknown]
  - Irritability [Unknown]
  - Feeling jittery [Unknown]
  - Neck pain [Unknown]
  - Muscle spasms [Unknown]
  - Injection site nodule [Unknown]
